FAERS Safety Report 4959209-0 (Version None)
Quarter: 2006Q1

REPORT INFORMATION
  Report Type: 
  Country: None (occurrence: None)
  Receive Date: 20060331
  Receipt Date: 20060322
  Transmission Date: 20060701
  Serious: Yes (Other)
  Sender: FDA-Public Use
  Company Number: US-JNJFOC-20060305885

PATIENT
  Sex: Male
  Weight: 99.79 kg

DRUGS (3)
  1. REMICADE [Suspect]
     Indication: RHEUMATOID ARTHRITIS
     Dosage: 4 VIALS
     Route: 042
  2. NSAIDS [Concomitant]
  3. ANALGESICS [Concomitant]
     Indication: RHEUMATOID ARTHRITIS

REACTIONS (1)
  - GALLBLADDER OPERATION [None]
